FAERS Safety Report 9708379 (Version 1)
Quarter: 2013Q4

REPORT INFORMATION
  Report Type: Spontaneous
  Country: US (occurrence: US)
  Receive Date: 20131125
  Receipt Date: 20131125
  Transmission Date: 20140711
  Serious: No
  Sender: FDA-Public Use
  Company Number: US-BAYER-2013-135482

PATIENT
  Age: 68 Year
  Sex: Female
  Weight: 75 kg

DRUGS (6)
  1. ALEVE TABLET [Suspect]
     Indication: ARTHRITIS
     Dosage: 1 TO 2 DF,QD
     Route: 048
     Dates: start: 2013
  2. PANTOPRAZOLE [Concomitant]
  3. SIMVASTATIN [Concomitant]
  4. VESICARE [Concomitant]
  5. ATIVAN [Concomitant]
  6. BAYER GENUINE ASPIRIN ORIGINAL STRENGTH [Concomitant]
     Indication: HEADACHE
     Dosage: OCCASIONALLY

REACTIONS (5)
  - Hepatic enzyme increased [None]
  - Hepatic enzyme decreased [None]
  - Hepatic enzyme increased [None]
  - Intentional drug misuse [None]
  - Incorrect drug administration duration [None]
